FAERS Safety Report 4931731-2 (Version None)
Quarter: 2006Q1

REPORT INFORMATION
  Report Type: 
  Country: None (occurrence: None)
  Receive Date: 20060303
  Receipt Date: 20060222
  Transmission Date: 20060701
  Serious: Yes (Hospitalization)
  Sender: FDA-Public Use
  Company Number: PHBS2006TR02885

PATIENT
  Sex: Female

DRUGS (2)
  1. LESCOL XL [Suspect]
     Indication: HYPERLIPIDAEMIA
     Route: 048
  2. LOPID [Concomitant]
     Indication: HYPERLIPIDAEMIA

REACTIONS (4)
  - BLOOD CREATINE PHOSPHOKINASE INCREASED [None]
  - HEPATIC ENZYME INCREASED [None]
  - RENAL IMPAIRMENT [None]
  - RHABDOMYOLYSIS [None]
